FAERS Safety Report 4392426-X (Version None)
Quarter: 2004Q3

REPORT INFORMATION
  Report Type: 
  Country: None (occurrence: None)
  Receive Date: 20040702
  Receipt Date: 20040224
  Transmission Date: 20050211
  Serious: Yes (Other)
  Sender: FDA-Public Use
  Company Number: 2004UW03276

PATIENT
  Age: 45 Year
  Sex: Female

DRUGS (3)
  1. CRESTOR [Suspect]
     Dosage: 1 DF ONCE PO
     Route: 048
     Dates: start: 20040220, end: 20040220
  2. DIURETIC [Concomitant]
  3. OTHER UNSPECIFIED [Concomitant]

REACTIONS (2)
  - DEPRESSED LEVEL OF CONSCIOUSNESS [None]
  - SWOLLEN TONGUE [None]
